FAERS Safety Report 4453687-1 (Version None)
Quarter: 2004Q3

REPORT INFORMATION
  Report Type: 
  Country: None (occurrence: None)
  Receive Date: 20040920
  Receipt Date: 20040903
  Transmission Date: 20050211
  Serious: Yes (Other)
  Sender: FDA-Public Use
  Company Number: GBWYE018206SEP04

PATIENT
  Sex: Male

DRUGS (4)
  1. ENBREL [Suspect]
     Indication: RHEUMATOID ARTHRITIS
     Route: 058
     Dates: start: 20031022
  2. PREDNISOLONE [Concomitant]
     Dates: start: 20011113
  3. PENICILLIN V [Concomitant]
     Dates: start: 20040610
  4. ALENDRONATE SODIUM [Concomitant]
     Dates: start: 20011113

REACTIONS (1)
  - CUTANEOUS LUPUS ERYTHEMATOSUS [None]
